FAERS Safety Report 17758659 (Version 14)
Quarter: 2023Q2

REPORT INFORMATION
  Report Type: Spontaneous
  Country: DE (occurrence: DE)
  Receive Date: 20200508
  Receipt Date: 20230621
  Transmission Date: 20230721
  Serious: Yes (Hospitalization, Other)
  Sender: FDA-Public Use
  Company Number: DE-002147023-NVSC2020DE111602

PATIENT
  Sex: Female
  Weight: 90 kg

DRUGS (8)
  1. FULVESTRANT [Suspect]
     Active Substance: FULVESTRANT
     Indication: Breast cancer
     Dosage: 500 MILLIGRAM, 2 TIMES IN A WEEK
     Route: 030
     Dates: start: 20190621, end: 20190705
  2. FULVESTRANT [Suspect]
     Active Substance: FULVESTRANT
     Dosage: 500 MILLIGRAM, 4 TIMES IN A WEEK
     Route: 030
     Dates: start: 20190719
  3. LETROZOLE [Suspect]
     Active Substance: LETROZOLE
     Indication: Breast cancer metastatic
     Dosage: 2.5 MILLIGRAM, ONCE A DAY
     Route: 048
     Dates: start: 20200313
  4. KISQALI [Suspect]
     Active Substance: RIBOCICLIB
     Indication: Breast cancer metastatic
     Dosage: 400 MILLIGRAM, ONCE A DAY
     Route: 048
     Dates: start: 20200313, end: 20200409
  5. KISQALI [Suspect]
     Active Substance: RIBOCICLIB
     Dosage: 400 MILLIGRAM, ONCE A DAY
     Route: 048
     Dates: start: 20200409
  6. KISQALI [Suspect]
     Active Substance: RIBOCICLIB
     Dosage: 400 MILLIGRAM, CYCLICAL (SCHEMA 21 DAYS INTAKE 7 DAYS PAUSE)
     Route: 048
     Dates: start: 20200313
  7. KISQALI [Suspect]
     Active Substance: RIBOCICLIB
     Dosage: 400 MILLIGRAM, CYCLICAL (SCHEME 21 DAYS INTAKE, 7DAYS PASUE)
     Route: 048
     Dates: start: 20200525, end: 20211101
  8. KISQALI [Suspect]
     Active Substance: RIBOCICLIB
     Dosage: 400 MILLIGRAM (400 MG (SCHEME 21 DAYS INTAKE, 7DAYS PASUE)
     Route: 048
     Dates: start: 20211223

REACTIONS (15)
  - Haematochezia [Recovering/Resolving]
  - Anaemia [Recovering/Resolving]
  - Coronavirus test positive [Recovered/Resolved]
  - Neutrophil count decreased [Recovered/Resolved]
  - Weight decreased [Recovered/Resolved]
  - Decreased appetite [Not Recovered/Not Resolved]
  - Pruritus [Recovered/Resolved]
  - Oedema peripheral [Not Recovered/Not Resolved]
  - Arthralgia [Not Recovered/Not Resolved]
  - Alopecia [Not Recovered/Not Resolved]
  - Onychoclasis [Not Recovered/Not Resolved]
  - Rash [Recovered/Resolved]
  - COVID-19 [Recovered/Resolved]
  - Decubitus ulcer [Recovering/Resolving]
  - Pain in extremity [Not Recovered/Not Resolved]

NARRATIVE: CASE EVENT DATE: 20200408
